FAERS Safety Report 7755777-4 (Version None)
Quarter: 2011Q3

REPORT INFORMATION
  Report Type: 
  Country: None (occurrence: None)
  Receive Date: 20110916
  Receipt Date: 20110914
  Transmission Date: 20111222
  Serious: Yes (Death, Congenital Anomaly)
  Sender: FDA-Public Use
  Company Number: PHHY2011RU62839

PATIENT
  Sex: Female

DRUGS (2)
  1. FOLIC ACID [Concomitant]
     Dosage: 3 MG, QD
     Route: 064
  2. TRILEPTAL [Suspect]
     Indication: EPILEPSY
     Dosage: 600 MG, DAILY
     Route: 064
     Dates: start: 20100401

REACTIONS (4)
  - HEART DISEASE CONGENITAL [None]
  - CARDIAC DISORDER [None]
  - CARDIAC FAILURE ACUTE [None]
  - MATERNAL EXPOSURE DURING PREGNANCY [None]
